FAERS Safety Report 8423369 (Version 2)
Quarter: 2013Q1

REPORT INFORMATION
  Report Type: Report from Study
  Country: US (occurrence: US)
  Receive Date: 20120223
  Receipt Date: 20130129
  Transmission Date: 20140127
  Serious: Yes (Hospitalization)
  Sender: FDA-Public Use
  Company Number: US-ROCHE-1039130

PATIENT
  Age: 34 Year
  Sex: Female

DRUGS (5)
  1. PEG-INTERFERON ALFA 2A [Suspect]
     Indication: HEPATITIS C
     Route: 058
     Dates: start: 20110210
  2. RIBAVIRIN [Suspect]
     Indication: HEPATITIS C
     Route: 048
     Dates: start: 20110210
  3. BMS-791325 [Suspect]
     Indication: HEPATITIS C
     Route: 065
     Dates: start: 20110210
  4. VITAMIN B12 [Concomitant]
     Route: 065
     Dates: start: 20110414
  5. FOLIC ACID [Concomitant]
     Route: 065
     Dates: start: 20110414

REACTIONS (2)
  - Anaemia [Recovered/Resolved]
  - Leukopenia [Recovered/Resolved]
